FAERS Safety Report 11704346 (Version 2)
Quarter: 2015Q4

REPORT INFORMATION
  Report Type: Spontaneous
  Country: US (occurrence: US)
  Receive Date: 20151106
  Receipt Date: 20151120
  Transmission Date: 20160304
  Serious: Yes (Other)
  Sender: FDA-Public Use
  Company Number: US-BAYER-2015-456235

PATIENT
  Age: 18 Year
  Sex: Female

DRUGS (1)
  1. SKYLA [Suspect]
     Active Substance: LEVONORGESTREL
     Dosage: 14 MCG/24HR, CONT
     Route: 015
     Dates: start: 2015

REACTIONS (7)
  - Depression [None]
  - Suicidal ideation [None]
  - Anger [None]
  - Aggression [None]
  - Abdominal pain lower [Recovered/Resolved]
  - Menstruation irregular [Recovered/Resolved]
  - Somnolence [None]

NARRATIVE: CASE EVENT DATE: 2015
